FAERS Safety Report 13551482 (Version 2)
Quarter: 2017Q2

REPORT INFORMATION
  Report Type: Report from Study
  Country: US (occurrence: US)
  Receive Date: 20170516
  Receipt Date: 20170621
  Transmission Date: 20170830
  Serious: Yes (Hospitalization)
  Sender: FDA-Public Use
  Company Number: US-AMGEN-USASL2017071743

PATIENT
  Age: 71 Year
  Sex: Female

DRUGS (1)
  1. ENBREL [Suspect]
     Active Substance: ETANERCEPT
     Indication: RHEUMATOID ARTHRITIS
     Dosage: 50 MG, QWK
     Route: 065
     Dates: end: 201705

REACTIONS (11)
  - Dyspnoea [Not Recovered/Not Resolved]
  - Inflammation [Unknown]
  - Neck pain [Recovering/Resolving]
  - Chest pain [Recovering/Resolving]
  - Respiratory rate decreased [Recovering/Resolving]
  - Weight decreased [Unknown]
  - Unresponsive to stimuli [Recovering/Resolving]
  - Hypotension [Unknown]
  - Pleural effusion [Recovering/Resolving]
  - Musculoskeletal pain [Recovering/Resolving]
  - Pericardial effusion [Recovering/Resolving]

NARRATIVE: CASE EVENT DATE: 2017
